FAERS Safety Report 25189438 (Version 1)
Quarter: 2025Q2

REPORT INFORMATION
  Report Type: Spontaneous
  Country: FR (occurrence: FR)
  Receive Date: 20250411
  Receipt Date: 20250411
  Transmission Date: 20250716
  Serious: Yes (Other)
  Sender: MYLAN
  Company Number: FR-MYLANLABS-2025M1031523

PATIENT
  Age: 3 Decade

DRUGS (2)
  1. IMATINIB [Suspect]
     Active Substance: IMATINIB
     Indication: Gastrointestinal stromal tumour
  2. IMATINIB [Suspect]
     Active Substance: IMATINIB
     Indication: Metastasis

REACTIONS (2)
  - Drug ineffective [Unknown]
  - Disease progression [Unknown]
